FAERS Safety Report 24674183 (Version 1)
Quarter: 2024Q4

REPORT INFORMATION
  Report Type: Spontaneous
  Country: TW (occurrence: TW)
  Receive Date: 20241128
  Receipt Date: 20241128
  Transmission Date: 20250115
  Serious: Yes (Other)
  Sender: MERCK
  Company Number: TW-009507513-2411TWN010102

PATIENT
  Age: 49 Year
  Sex: Male

DRUGS (3)
  1. LETERMOVIR [Suspect]
     Active Substance: LETERMOVIR
     Dosage: 240 MILLIGRAM, QD
     Dates: start: 20211215
  2. MITOXANTRONE [Suspect]
     Active Substance: MITOXANTRONE HYDROCHLORIDE
  3. CYTARABINE [Suspect]
     Active Substance: CYTARABINE

REACTIONS (1)
  - Cytomegalovirus gastrointestinal ulcer [Unknown]

NARRATIVE: CASE EVENT DATE: 20220126
